FAERS Safety Report 4577566-4 (Version None)
Quarter: 2005Q1

REPORT INFORMATION
  Report Type: 
  Country: None (occurrence: None)
  Receive Date: 20050127
  Receipt Date: 20041020
  Transmission Date: 20050727
  Serious: No
  Sender: FDA-Public Use
  Company Number: US_0410107054

PATIENT
  Age: 35 Year
  Sex: Male
  Weight: 75 kg

DRUGS (6)
  1. STRATTERA [Suspect]
     Indication: ATTENTION DEFICIT/HYPERACTIVITY DISORDER
     Dosage: 80 MG DAY
     Dates: start: 20040101, end: 20040926
  2. FLUOXETINE HYDROCHLORIDE [Concomitant]
  3. FLUOXETINE HYDROCHLORIDE [Concomitant]
  4. COORDINATION ABNORMAL [Concomitant]
  5. NAUSEA [Concomitant]
  6. PARAESTHESIA [Concomitant]

REACTIONS (5)
  - COORDINATION ABNORMAL [None]
  - DELUSION [None]
  - DRUG INEFFECTIVE [None]
  - NAUSEA [None]
  - PARAESTHESIA [None]
